FAERS Safety Report 4714789-5 (Version None)
Quarter: 2005Q3

REPORT INFORMATION
  Report Type: 
  Country: None (occurrence: None)
  Receive Date: 20050714
  Receipt Date: 20050714
  Transmission Date: 20060218
  Serious: Yes (Hospitalization)
  Sender: FDA-Public Use
  Company Number: None

PATIENT
  Age: 69 Year
  Sex: Female

DRUGS (1)
  1. INFLIXMAB; REMICADE; CENTOCOR, INFLAMMATORY BOWEL DISEASE [Suspect]
     Indication: CROHN'S DISEASE
     Dosage: INTRAVENOUS ; 1100.0
     Route: 042
     Dates: start: 20050126, end: 20050615

REACTIONS (4)
  - CARDIAC FAILURE CONGESTIVE [None]
  - CONDITION AGGRAVATED [None]
  - CROHN'S DISEASE [None]
  - FATIGUE [None]
